FAERS Safety Report 7351819-9 (Version None)
Quarter: 2011Q1

REPORT INFORMATION
  Report Type: 
  Country: None (occurrence: None)
  Receive Date: 20110315
  Receipt Date: 20100129
  Transmission Date: 20110831
  Serious: No
  Sender: FDA-Public Use
  Company Number: US-BAYER-201012934NA

PATIENT
  Sex: Female
  Weight: 79.545 kg

DRUGS (2)
  1. VALTREX [Concomitant]
     Indication: HERPES SIMPLEX
  2. MIRENA [Suspect]
     Indication: GENITAL HAEMORRHAGE
     Dosage: 20 ?G/D, CONT
     Route: 015
     Dates: start: 20091214

REACTIONS (2)
  - DEVICE DISLOCATION [None]
  - GENITAL HAEMORRHAGE [None]
